FAERS Safety Report 8949383 (Version 1)
Quarter: 2012Q4

REPORT INFORMATION
  Report Type: 
  Country: DE (occurrence: DE)
  Receive Date: 20121206
  Receipt Date: 20121206
  Transmission Date: 20130627
  Serious: Yes (Other)
  Sender: FDA-Public Use
  Company Number: DE-ASTRAZENECA-2012SE89895

PATIENT
  Age: 22280 Day
  Sex: Male
  Weight: 85 kg

DRUGS (2)
  1. ATACAND [Suspect]
     Route: 048
  2. VALSARTAN [Suspect]
     Indication: HYPERTENSION
     Dosage: HALF DOSAGE FORM TWICE DAILY
     Route: 048
     Dates: start: 2009, end: 2012

REACTIONS (4)
  - Arthritis [Recovering/Resolving]
  - Myositis [Recovering/Resolving]
  - Tendon rupture [Recovering/Resolving]
  - Tendonitis [Recovering/Resolving]
